FAERS Safety Report 5507627-4 (Version None)
Quarter: 2007Q4

REPORT INFORMATION
  Report Type: 
  Country: None (occurrence: None)
  Receive Date: 20071105
  Receipt Date: 20071105
  Transmission Date: 20080405
  Serious: Yes (Hospitalization)
  Sender: FDA-Public Use
  Company Number: None

PATIENT
  Age: 39 Year
  Sex: Male
  Weight: 81.6475 kg

DRUGS (1)
  1. RIFAMPIN [Suspect]
     Indication: TUBERCULOSIS SKIN TEST POSITIVE
     Dosage: 300MG  ONCE DAILY  PO
     Route: 048
     Dates: start: 20071015, end: 20071101

REACTIONS (1)
  - MYALGIA [None]
